FAERS Safety Report 11608608 (Version 1)
Quarter: 2015Q4

REPORT INFORMATION
  Report Type: Spontaneous
  Country: US (occurrence: US)
  Receive Date: 20151007
  Receipt Date: 20151007
  Transmission Date: 20160304
  Serious: No
  Sender: FDA-Public Use
  Company Number: PHEH2015US019832

PATIENT
  Sex: Female

DRUGS (2)
  1. SANDOSTATIN LAR DEPOT [Suspect]
     Active Substance: OCTREOTIDE ACETATE
     Indication: POLYCYSTIC LIVER DISEASE
     Dosage: 40 MG, QMO (Q28DAYS)
     Route: 030
     Dates: start: 201012
  2. SANDOSTATIN LAR DEPOT [Suspect]
     Active Substance: OCTREOTIDE ACETATE
     Indication: CONGENITAL CYSTIC KIDNEY DISEASE

REACTIONS (1)
  - Off label use [Unknown]
